FAERS Safety Report 6141758-3 (Version None)
Quarter: 2009Q2

REPORT INFORMATION
  Report Type: 
  Country: None (occurrence: None)
  Receive Date: 20090402
  Receipt Date: 20080908
  Transmission Date: 20091009
  Serious: No
  Sender: FDA-Public Use
  Company Number: US-ABBOTT-08P-163-0474915-00

PATIENT
  Age: 48 Year
  Sex: Female

DRUGS (5)
  1. LUPRON DEPOT [Suspect]
     Indication: UTERINE LEIOMYOMA
     Route: 030
     Dates: start: 20080905, end: 20080905
  2. LUPRON DEPOT [Suspect]
     Indication: HAEMORRHAGE
     Route: 030
     Dates: start: 20080805, end: 20080805
  3. MEDROXYPROGESTERONE [Concomitant]
     Indication: DRUG USE FOR UNKNOWN INDICATION
  4. ESTRADIOL [Concomitant]
     Indication: UTERINE LEIOMYOMA
  5. ESTRADIOL [Concomitant]
     Indication: HAEMORRHAGE

REACTIONS (2)
  - MOVEMENT DISORDER [None]
  - MYALGIA [None]
